FAERS Safety Report 20566986 (Version 6)
Quarter: 2022Q4

REPORT INFORMATION
  Report Type: Spontaneous
  Country: FR (occurrence: FR)
  Receive Date: 20220308
  Receipt Date: 20221214
  Transmission Date: 20230113
  Serious: Yes (Death, Other)
  Sender: FDA-Public Use
  Company Number: FR-PFIZER INC-202200150738

PATIENT
  Age: 27 Year
  Sex: Male

DRUGS (17)
  1. PROPOFOL [Suspect]
     Active Substance: PROPOFOL
     Indication: Product used for unknown indication
     Dosage: UNK
     Route: 065
  2. PROPOFOL [Suspect]
     Active Substance: PROPOFOL
     Indication: Substance use
  3. DOXYLAMINE [Suspect]
     Active Substance: DOXYLAMINE
     Indication: Product used for unknown indication
     Dosage: UNK
     Route: 065
  4. DOXYLAMINE [Suspect]
     Active Substance: DOXYLAMINE
     Indication: Substance use
  5. REMIFENTANIL [Suspect]
     Active Substance: REMIFENTANIL
     Indication: Product used for unknown indication
     Dosage: UNK
     Route: 065
  6. REMIFENTANIL [Suspect]
     Active Substance: REMIFENTANIL
     Indication: Substance use
  7. LYRICA [Suspect]
     Active Substance: PREGABALIN
     Indication: Substance use
     Dosage: UNK
     Route: 065
  8. LODENOSINE [Suspect]
     Active Substance: LODENOSINE
     Indication: Product used for unknown indication
     Dosage: UNK
     Route: 065
  9. LODENOSINE [Suspect]
     Active Substance: LODENOSINE
     Indication: Substance use
  10. BENZOYLECGONINE [Suspect]
     Active Substance: BENZOYLECGONINE
     Indication: Product used for unknown indication
     Dosage: UNK
     Route: 065
  11. CLONAZEPAM [Suspect]
     Active Substance: CLONAZEPAM
     Indication: Product used for unknown indication
     Dosage: UNK
     Route: 065
  12. CLONAZEPAM [Suspect]
     Active Substance: CLONAZEPAM
     Indication: Substance use
  13. LEVAMISOLE [Suspect]
     Active Substance: LEVAMISOLE
     Indication: Product used for unknown indication
     Dosage: UNK
     Route: 065
  14. LEVAMISOLE [Suspect]
     Active Substance: LEVAMISOLE
     Indication: Substance use
  15. ECGONINE METHYL ESTER [Suspect]
     Active Substance: ECGONINE METHYL ESTER
     Indication: Product used for unknown indication
     Dosage: UNK
     Route: 065
  16. METHADONE [Suspect]
     Active Substance: METHADONE HYDROCHLORIDE
     Indication: Product used for unknown indication
     Dosage: UNK
     Route: 065
  17. METHADONE [Suspect]
     Active Substance: METHADONE HYDROCHLORIDE
     Indication: Substance use

REACTIONS (8)
  - Infection [Fatal]
  - Toxicity to various agents [Fatal]
  - Intentional product misuse [Fatal]
  - Intentional overdose [Fatal]
  - Substance abuse [Fatal]
  - Drug level above therapeutic [Fatal]
  - Drug abuse [Unknown]
  - Overdose [Unknown]
